FAERS Safety Report 6211322-6 (Version None)
Quarter: 2009Q2

REPORT INFORMATION
  Report Type: 
  Country: None (occurrence: None)
  Receive Date: 20090602
  Receipt Date: 20090528
  Transmission Date: 20091009
  Serious: Yes (Hospitalization)
  Sender: FDA-Public Use
  Company Number: JP-BRISTOL-MYERS SQUIBB COMPANY-14493381

PATIENT
  Age: 66 Year
  Sex: Male
  Weight: 63 kg

DRUGS (9)
  1. ABATACEPT [Suspect]
     Indication: RHEUMATOID ARTHRITIS
     Dosage: INTERRUPTED ON 08MAR07.
     Route: 041
     Dates: start: 20070303
  2. PREDONINE [Suspect]
     Indication: RHEUMATOID ARTHRITIS
     Dosage: FORM = TAB
     Route: 048
     Dates: start: 20070126
  3. NABOAL [Concomitant]
     Indication: RHEUMATOID ARTHRITIS
     Dosage: NABOAL SR FORM = SRC
     Route: 048
  4. MILTAX [Concomitant]
     Indication: RHEUMATOID ARTHRITIS
     Dosage: FORM = TAP ROUTE: OID
     Dates: start: 20070405
  5. VOLTAREN [Concomitant]
     Indication: RHEUMATOID ARTHRITIS
     Dosage: SUPPO FORM = SUPP
     Route: 054
     Dates: start: 20070628
  6. OMEPRAL [Concomitant]
     Indication: GASTRITIS
     Dosage: FORM = TAB
     Route: 048
  7. DIOVAN [Concomitant]
     Indication: HYPERTENSION
     Dosage: FORM = TAB
     Route: 048
  8. CYANOCOBALAMIN [Concomitant]
     Indication: NEUROPATHY PERIPHERAL
     Dosage: FORM = TAB
     Route: 048
  9. JUVELA NICOTINATE [Concomitant]
     Indication: NEUROPATHY PERIPHERAL
     Dosage: FORM = CAP
     Route: 048
     Dates: start: 20070824

REACTIONS (3)
  - DEAFNESS [None]
  - EAR INFECTION FUNGAL [None]
  - OTITIS MEDIA CHRONIC [None]
